FAERS Safety Report 9688750 (Version 1)
Quarter: 2013Q4

REPORT INFORMATION
  Report Type: Spontaneous
  Country: JP (occurrence: JP)
  Receive Date: 20131114
  Receipt Date: 20131114
  Transmission Date: 20140711
  Serious: Yes (Death, Hospitalization)
  Sender: FDA-Public Use
  Company Number: JP-ROCHE-1299593

PATIENT
  Age: 60 Year
  Sex: Male

DRUGS (2)
  1. XELODA [Suspect]
     Indication: GASTRIC CANCER
     Dosage: DOSAGE IS UNCERTAIN.
     Route: 048
  2. CISPLATIN [Suspect]
     Indication: GASTRIC CANCER
     Route: 042

REACTIONS (3)
  - Pulmonary haemorrhage [Fatal]
  - White blood cell count decreased [Recovered/Resolved]
  - Decreased appetite [Recovered/Resolved]
